FAERS Safety Report 4657598-8 (Version None)
Quarter: 2005Q2

REPORT INFORMATION
  Report Type: 
  Country: None (occurrence: None)
  Receive Date: 20050405
  Receipt Date: 20040421
  Transmission Date: 20051028
  Serious: Yes (Other)
  Sender: FDA-Public Use
  Company Number: 2004027328

PATIENT
  Age: 46 Year
  Sex: Male
  Weight: 89.8122 kg

DRUGS (6)
  1. GEODON [Suspect]
     Indication: PSYCHOTIC DISORDER
     Dosage: 160 MG (BID), ORAL
     Route: 048
     Dates: start: 20030401
  2. BENZTROPINE MESYLATE [Suspect]
     Indication: DYSTONIA
     Dosage: 2 MG (ONCE), INTRAMUSCULAR
     Route: 030
     Dates: start: 20040420, end: 20040420
  3. BENZTROPINE MESYLATE [Suspect]
     Indication: DYSTONIA
     Dosage: 2 MG (ONCE), INTRAMUSCULAR
     Route: 030
     Dates: start: 20040401
  4. LEVOTHYROXINE SODIUM [Concomitant]
  5. CITALOPRAM (CITALOPRAM [Concomitant]
  6. OLANZAPINE (OLANZAPINE) [Concomitant]

REACTIONS (5)
  - ANXIETY [None]
  - DYSTONIA [None]
  - ROAD TRAFFIC ACCIDENT [None]
  - SOMNOLENCE [None]
  - SWOLLEN TONGUE [None]
